FAERS Safety Report 7425437-8 (Version None)
Quarter: 2011Q2

REPORT INFORMATION
  Report Type: 
  Country: None (occurrence: None)
  Receive Date: 20110414
  Receipt Date: 20110328
  Transmission Date: 20111010
  Serious: No
  Sender: FDA-Public Use
  Company Number: 2011-0901

PATIENT
  Age: 61 Year
  Sex: Female

DRUGS (1)
  1. BOTULINUM TOXIN TYPE A [Suspect]
     Indication: SKIN WRINKLING
     Dosage: NOT REPORTED (,SINGLE CYCLE) INTRAMUSCULAR
     Route: 030
     Dates: start: 20110322, end: 20110322

REACTIONS (1)
  - URTICARIA [None]
